FAERS Safety Report 9827955 (Version 1)
Quarter: 2014Q1

REPORT INFORMATION
  Report Type: Spontaneous
  Country: US (occurrence: None)
  Receive Date: 20140116
  Receipt Date: 20140116
  Transmission Date: 20141002
  Serious: No
  Sender: FDA-Public Use
  Company Number: None

PATIENT
  Age: 68 Year
  Sex: Male
  Weight: 114.5 kg

DRUGS (1)
  1. SILDENAFIL [Suspect]
     Route: 048
     Dates: start: 20120806, end: 20121204

REACTIONS (2)
  - Photophobia [None]
  - Visual impairment [None]
